FAERS Safety Report 20090659 (Version 1)
Quarter: 2021Q4

REPORT INFORMATION
  Report Type: Spontaneous
  Country: DE (occurrence: DE)
  Receive Date: 20211119
  Receipt Date: 20211119
  Transmission Date: 20220303
  Serious: Yes (Other)
  Sender: FDA-Public Use
  Company Number: DE-PFIZER INC-202101553754

PATIENT
  Age: 42 Year
  Sex: Female

DRUGS (13)
  1. EPIRUBICIN HYDROCHLORIDE [Suspect]
     Active Substance: EPIRUBICIN HYDROCHLORIDE
     Indication: Breast cancer
     Dosage: NEOADJUVANT 4X ECDD
  2. TRASTUZUMAB [Suspect]
     Active Substance: TRASTUZUMAB
     Indication: Breast cancer
     Dosage: NEOADJUVANT
  3. TRASTUZUMAB [Suspect]
     Active Substance: TRASTUZUMAB
     Dosage: COMPLETION OF TRASTUZUMAB AD 1 YEAR
  4. TRASTUZUMAB [Suspect]
     Active Substance: TRASTUZUMAB
     Dosage: Q3W
     Dates: start: 201911, end: 202002
  5. TRASTUZUMAB [Suspect]
     Active Substance: TRASTUZUMAB
     Dosage: Q3W
     Dates: start: 202002
  6. CYCLOPHOSPHAMIDE [Suspect]
     Active Substance: CYCLOPHOSPHAMIDE
     Indication: Breast cancer
     Dosage: NEOADJUVANT 4X ECDD
  7. PACLITAXEL [Suspect]
     Active Substance: PACLITAXEL
     Indication: Breast cancer
     Dosage: 12XPAC
  8. PERTUZUMAB [Suspect]
     Active Substance: PERTUZUMAB
     Indication: Breast cancer
     Dosage: NEOADJUVANT
  9. PERTUZUMAB [Suspect]
     Active Substance: PERTUZUMAB
     Dosage: Q3W
     Dates: start: 201911, end: 202002
  10. PERTUZUMAB [Suspect]
     Active Substance: PERTUZUMAB
     Dosage: Q3W
     Dates: start: 202002
  11. TAMOXIFEN [Suspect]
     Active Substance: TAMOXIFEN
     Indication: Breast cancer
     Dosage: ADJ
  12. PACLITAXEL [Suspect]
     Active Substance: PACLITAXEL
     Indication: Breast cancer
     Dosage: 10X NAB-PAC WEEKLY
     Dates: start: 201911, end: 202002
  13. ADO-TRASTUZUMAB EMTANSINE [Suspect]
     Active Substance: ADO-TRASTUZUMAB EMTANSINE
     Dosage: 4X T-DM1 Q3W
     Dates: start: 20201111

REACTIONS (3)
  - Polyneuropathy [Unknown]
  - Neoplasm progression [Unknown]
  - Off label use [Unknown]

NARRATIVE: CASE EVENT DATE: 20191101
